FAERS Safety Report 5427085-8 (Version None)
Quarter: 2007Q3

REPORT INFORMATION
  Report Type: 
  Country: None (occurrence: None)
  Receive Date: 20070828
  Receipt Date: 20070815
  Transmission Date: 20080115
  Serious: Yes (Other)
  Sender: FDA-Public Use
  Company Number: PHHO2007BR11714

PATIENT
  Age: 53 Year
  Sex: Female

DRUGS (1)
  1. DIOVAN HCT [Suspect]
     Dosage: 160/12.5MG DAILY
     Route: 048

REACTIONS (5)
  - DRUG INEFFECTIVE [None]
  - HYPERTENSION [None]
  - INSOMNIA [None]
  - POLLAKIURIA [None]
  - WEIGHT DECREASED [None]
